FAERS Safety Report 10846618 (Version 1)
Quarter: 2015Q1

REPORT INFORMATION
  Report Type: Spontaneous
  Country: US (occurrence: US)
  Receive Date: 20150220
  Receipt Date: 20150220
  Transmission Date: 20150721
  Serious: Yes (Hospitalization)
  Sender: FDA-Public Use
  Company Number: US-AMGEN-USASP2015015010

PATIENT
  Age: 45 Year
  Sex: Male

DRUGS (8)
  1. ACYCLOVIR                          /00587301/ [Concomitant]
     Active Substance: ACYCLOVIR
     Dosage: 800 MG, BID
  2. ALLOPURINOL. [Concomitant]
     Active Substance: ALLOPURINOL
     Dosage: 300 MG, BID
  3. NORMAL SALINE [Concomitant]
     Active Substance: SODIUM CHLORIDE
     Dosage: UNK
  4. MEPERIDINE                         /00016301/ [Concomitant]
     Active Substance: MEPERIDINE
     Indication: CHILLS
     Dosage: UNK UNK, Q2H AS NEEDED
  5. DEXAMETHASONE. [Concomitant]
     Active Substance: DEXAMETHASONE
     Dosage: 20 MG, QWK
  6. TYLENOL [Concomitant]
     Active Substance: ACETAMINOPHEN
     Dosage: UNK UNK, AS NECESSARY
  7. BLINCYTO [Suspect]
     Active Substance: BLINATUMOMAB
     Indication: LEUKAEMIA RECURRENT
     Dosage: 11.25 MUG, UNK
     Route: 065
     Dates: start: 20140210
  8. FAMOTIDINE. [Concomitant]
     Active Substance: FAMOTIDINE
     Indication: MUCOSITIS MANAGEMENT
     Dosage: 20 MG, QD

REACTIONS (2)
  - Hepatic enzyme abnormal [Not Recovered/Not Resolved]
  - Off label use [Unknown]

NARRATIVE: CASE EVENT DATE: 20150210
